FAERS Safety Report 9854680 (Version 1)
Quarter: 2014Q1

REPORT INFORMATION
  Report Type: Report from Study
  Country: CA (occurrence: CA)
  Receive Date: 20140130
  Receipt Date: 20140130
  Transmission Date: 20141002
  Serious: Yes (Hospitalization)
  Sender: FDA-Public Use
  Company Number: CA-BRISTOL-MYERS SQUIBB COMPANY-20107330

PATIENT
  Age: 56 Year
  Sex: Female

DRUGS (7)
  1. ORENCIA [Suspect]
     Indication: PSORIASIS
     Dosage: 1DF=500 UNIT NOS
     Dates: start: 201110
  2. DIOVAN [Concomitant]
  3. ESTROGEN [Concomitant]
  4. PROMETRIUM [Concomitant]
  5. CLONAZEPAM [Concomitant]
  6. TRAZODONE HCL [Concomitant]
  7. HYDROMORPHONE [Concomitant]

REACTIONS (2)
  - Joint arthroplasty [Unknown]
  - Intestinal obstruction [Unknown]
